FAERS Safety Report 4869082-7 (Version None)
Quarter: 2005Q4

REPORT INFORMATION
  Report Type: 
  Country: None (occurrence: None)
  Receive Date: 20051219
  Receipt Date: 20051208
  Transmission Date: 20060501
  Serious: Yes (Other)
  Sender: FDA-Public Use
  Company Number: 05-509

PATIENT
  Age: 51 Year
  Sex: Male

DRUGS (1)
  1. VENOGLOBULIN-S [Suspect]
     Indication: SELECTIVE IGA IMMUNODEFICIENCY
     Dates: start: 19940301

REACTIONS (1)
  - HEPATITIS C VIRUS [None]
